FAERS Safety Report 19608911 (Version 1)
Quarter: 2021Q3

REPORT INFORMATION
  Report Type: Report from Study
  Country: US (occurrence: US)
  Receive Date: 20210726
  Receipt Date: 20210726
  Transmission Date: 20211014
  Serious: Yes (Other)
  Sender: FDA-Public Use
  Company Number: NVSC2021US162944

PATIENT
  Sex: Male

DRUGS (1)
  1. GILENYA [Suspect]
     Active Substance: FINGOLIMOD HYDROCHLORIDE
     Indication: PRODUCT USED FOR UNKNOWN INDICATION
     Route: 065

REACTIONS (7)
  - Choking [Unknown]
  - Pain in extremity [Unknown]
  - Balance disorder [Unknown]
  - Amnesia [Unknown]
  - Depressed mood [Unknown]
  - Relapsing-remitting multiple sclerosis [Unknown]
  - Burning sensation [Unknown]
